FAERS Safety Report 25225287 (Version 1)
Quarter: 2025Q2

REPORT INFORMATION
  Report Type: Spontaneous
  Country: US (occurrence: US)
  Receive Date: 20250422
  Receipt Date: 20250422
  Transmission Date: 20250716
  Serious: No
  Sender: BAYER HEALTHCARE LLC
  Company Number: US-BAYER-2025A053330

PATIENT
  Sex: Female

DRUGS (1)
  1. CLARITIN [Suspect]
     Active Substance: LORATADINE
     Indication: Prophylaxis
     Route: 048

REACTIONS (3)
  - Adverse drug reaction [Recovering/Resolving]
  - Somnolence [Recovering/Resolving]
  - Feeling jittery [Recovering/Resolving]
